FAERS Safety Report 7906480-9 (Version None)
Quarter: 2011Q4

REPORT INFORMATION
  Report Type: 
  Country: None (occurrence: None)
  Receive Date: 20111110
  Receipt Date: 20111107
  Transmission Date: 20120403
  Serious: Yes (Other)
  Sender: FDA-Public Use
  Company Number: US-PFIZER INC-2011272548

PATIENT
  Sex: Female
  Weight: 76.19 kg

DRUGS (3)
  1. CHANTIX [Suspect]
     Dosage: 0.5 MG, 2X/DAY
     Route: 048
     Dates: start: 20111103, end: 20111106
  2. CHANTIX [Suspect]
     Indication: SMOKING CESSATION THERAPY
     Dosage: 0.5 MG, DAILY
     Route: 048
     Dates: start: 20111031, end: 20111102
  3. VITAMIN TAB [Concomitant]
     Indication: SUPPLEMENTATION THERAPY
     Dosage: UNK, DAILY

REACTIONS (8)
  - AGITATION [None]
  - ANGER [None]
  - POOR QUALITY SLEEP [None]
  - FEELING ABNORMAL [None]
  - SLUGGISHNESS [None]
  - FRUSTRATION [None]
  - CRYING [None]
  - ABNORMAL DREAMS [None]
